FAERS Safety Report 8303105-8 (Version None)
Quarter: 2012Q2

REPORT INFORMATION
  Report Type: 
  Country: None (occurrence: None)
  Receive Date: 20120423
  Receipt Date: 20120410
  Transmission Date: 20120825
  Serious: Yes (Other)
  Sender: FDA-Public Use
  Company Number: BR-AMGEN-BRASP2012023581

PATIENT
  Age: 35 Year
  Sex: Female
  Weight: 57 kg

DRUGS (2)
  1. AZULFIN [Concomitant]
     Dosage: UNK
  2. ENBREL [Suspect]
     Indication: ANKYLOSING SPONDYLITIS
     Dosage: 50 MG, WEEKLY
     Route: 058
     Dates: start: 20111201

REACTIONS (6)
  - AMENORRHOEA [None]
  - NAUSEA [None]
  - POLYMENORRHOEA [None]
  - HEADACHE [None]
  - POLYCYSTIC OVARIES [None]
  - INJECTION SITE PAIN [None]
